FAERS Safety Report 9350860 (Version 1)
Quarter: 2013Q2

REPORT INFORMATION
  Report Type: Spontaneous
  Country: TN (occurrence: TN)
  Receive Date: 20130617
  Receipt Date: 20130617
  Transmission Date: 20140414
  Serious: Yes (Disabling)
  Sender: FDA-Public Use
  Company Number: TN-MYLANLABS-2013S1012384

PATIENT
  Age: 60 Year
  Sex: Female

DRUGS (1)
  1. ATORVASTATIN [Suspect]
     Indication: DYSLIPIDAEMIA
     Route: 065

REACTIONS (1)
  - Piriformis syndrome [Recovering/Resolving]
